FAERS Safety Report 6911938-5 (Version None)
Quarter: 2010Q3

REPORT INFORMATION
  Report Type: 
  Country: None (occurrence: None)
  Receive Date: 20100806
  Receipt Date: 20070828
  Transmission Date: 20110219
  Serious: No
  Sender: FDA-Public Use
  Company Number: US-PFIZER INC-2007048617

PATIENT
  Sex: Female
  Weight: 64 kg

DRUGS (16)
  1. VFEND [Suspect]
     Indication: FUNGAL INFECTION
  2. REVATIO [Interacting]
     Indication: PULMONARY HYPERTENSION
     Dates: start: 20070301
  3. XOPENEX [Concomitant]
  4. REGLAN [Concomitant]
  5. PREVACID [Concomitant]
  6. TRAZODONE [Concomitant]
  7. MONTELUKAST SODIUM [Concomitant]
  8. ZOLOFT [Concomitant]
  9. XANAX [Concomitant]
  10. PREMPRO [Concomitant]
  11. LASIX [Concomitant]
  12. POTASSIUM [Concomitant]
  13. ADVAIR DISKUS 100/50 [Concomitant]
  14. SYNTHROID [Concomitant]
  15. ALDACTONE [Concomitant]
  16. LOPERAMIDE HYDROCHLORIDE [Concomitant]
     Indication: DIARRHOEA

REACTIONS (2)
  - DRUG INTERACTION [None]
  - VISION BLURRED [None]
